FAERS Safety Report 4290076-7 (Version None)
Quarter: 2004Q1

REPORT INFORMATION
  Report Type: 
  Country: None (occurrence: None)
  Receive Date: 20040206
  Receipt Date: 20040127
  Transmission Date: 20041129
  Serious: Yes (Death)
  Sender: FDA-Public Use
  Company Number: HQWYE570127JAN04

PATIENT
  Age: 64 Year
  Sex: Male

DRUGS (12)
  1. CORDARONE [Suspect]
     Indication: ATRIAL FIBRILLATION
     Dosage: 300 MG 1 X PER 1 DAY, ORAL
     Route: 048
     Dates: start: 20031006, end: 20031206
  2. CISPLATIN [Suspect]
     Indication: LUNG NEOPLASM MALIGNANT
     Dosage: 100 MG/M^2 FOR THREE CYCLES, INTRAVENOUS
     Route: 042
     Dates: start: 20030401, end: 20030512
  3. GEMZAR [Suspect]
     Indication: LUNG NEOPLASM MALIGNANT
     Dosage: 1250 MG/M^2 FOR THREE CYCLES, INTRAVENOUS
     Route: 042
     Dates: start: 20030401, end: 20030512
  4. IRESSA [Suspect]
     Indication: LUNG NEOPLASM MALIGNANT
     Dosage: 250 MG 1 X PER 1 DAY
     Dates: start: 20031110, end: 20031201
  5. IRESSA [Suspect]
     Indication: PERICARDITIS
     Dosage: 250 MG 1 X PER 1 DAY
     Dates: start: 20031110, end: 20031201
  6. KARDEGIC (ACETYLSALICYLATE LYSINE) [Suspect]
     Indication: ATRIAL FIBRILLATION
     Dosage: 160 MG 1 X PER 1 DAY, ORAL
     Route: 048
     Dates: start: 20031006, end: 20031206
  7. BISOPROLOL FUMARATE [Suspect]
     Indication: ATRIAL FIBRILLATION
     Dosage: 5 MG 1 X PER 1 DAY, ORAL
     Route: 048
     Dates: start: 20031006, end: 20031206
  8. NEURONTIN [Concomitant]
  9. OMEPRAZOLE [Concomitant]
  10. CLONAZEPAM [Concomitant]
  11. AMITRIPTYLINE HYDROCHLORIDE [Concomitant]
  12. SOLUPRED (PREDNISOLONE SOIDUM SULFOBENZOATE) [Concomitant]

REACTIONS (6)
  - ACNE [None]
  - CARDIO-RESPIRATORY ARREST [None]
  - DYSPNOEA [None]
  - PERICARDIAL EFFUSION [None]
  - PULMONARY EMBOLISM [None]
  - WEIGHT INCREASED [None]
